FAERS Safety Report 17221544 (Version 1)
Quarter: 2020Q1

REPORT INFORMATION
  Report Type: Report from Study
  Country: US (occurrence: US)
  Receive Date: 20200101
  Receipt Date: 20200101
  Transmission Date: 20200409
  Serious: Yes (Other)
  Sender: FDA-Public Use
  Company Number: US-ROCHE-2508544

PATIENT

DRUGS (1)
  1. CLONAZEPAM. [Suspect]
     Active Substance: CLONAZEPAM
     Indication: FOCAL DYSCOGNITIVE SEIZURES
     Route: 065

REACTIONS (7)
  - Behaviour disorder [Unknown]
  - Mental impairment [Unknown]
  - Personality change [Unknown]
  - Ataxia [Unknown]
  - Lethargy [Unknown]
  - Drug ineffective [Unknown]
  - Somnolence [Unknown]
